FAERS Safety Report 12456668 (Version 1)
Quarter: 2016Q2

REPORT INFORMATION
  Report Type: Spontaneous
  Country: US (occurrence: US)
  Receive Date: 20160610
  Receipt Date: 20160610
  Transmission Date: 20160815
  Serious: Yes (Hospitalization, Other)
  Sender: FDA-Public Use
  Company Number: US-GLAXOSMITHKLINE-US2016083141

PATIENT
  Age: 55 Year
  Sex: Female

DRUGS (1)
  1. VOLTAREN [Suspect]
     Active Substance: DICLOFENAC SODIUM
     Indication: PRODUCT USED FOR UNKNOWN INDICATION
     Dosage: UNK
     Dates: end: 20160520

REACTIONS (11)
  - Urticaria [Recovered/Resolved]
  - Confusional state [Not Recovered/Not Resolved]
  - Amnesia [Unknown]
  - Tremor [Unknown]
  - Head discomfort [Unknown]
  - Pruritus [Unknown]
  - Incorrect dosage administered [Unknown]
  - Gastric haemorrhage [Unknown]
  - Faeces discoloured [Recovered/Resolved]
  - Feeling abnormal [Unknown]
  - Inappropriate schedule of drug administration [Unknown]

NARRATIVE: CASE EVENT DATE: 20160520
